FAERS Safety Report 6348621-3 (Version None)
Quarter: 2009Q3

REPORT INFORMATION
  Report Type: 
  Country: None (occurrence: None)
  Receive Date: 20090911
  Receipt Date: 20080403
  Transmission Date: 20100115
  Serious: Yes (Hospitalization, Other)
  Sender: FDA-Public Use
  Company Number: US-ASTRAZENECA-2006UW22653

PATIENT
  Age: 21334 Day
  Sex: Female
  Weight: 104.3 kg

DRUGS (4)
  1. SEROQUEL [Suspect]
     Indication: SCHIZOPHRENIA
     Route: 048
     Dates: start: 20050101, end: 20060101
  2. SEROQUEL [Suspect]
     Indication: DEPRESSION
     Route: 048
     Dates: start: 20050101, end: 20060101
  3. GEODON [Concomitant]
     Dates: start: 20060101
  4. ZYPREXA [Concomitant]
     Dates: start: 20050101, end: 20060101

REACTIONS (9)
  - CATARACT [None]
  - CATARACT CORTICAL [None]
  - DIABETES MELLITUS [None]
  - DIABETIC COMPLICATION [None]
  - EYE DISORDER [None]
  - PNEUMONIA [None]
  - PNEUMONIA STREPTOCOCCAL [None]
  - TYPE 2 DIABETES MELLITUS [None]
  - VISUAL IMPAIRMENT [None]
